FAERS Safety Report 4292730-X (Version None)
Quarter: 2004Q1

REPORT INFORMATION
  Report Type: 
  Country: None (occurrence: None)
  Receive Date: 20040211
  Receipt Date: 20040204
  Transmission Date: 20041129
  Serious: Yes (Hospitalization)
  Sender: FDA-Public Use
  Company Number: WAES 0402USA00397

PATIENT
  Age: 65 Year
  Sex: Female

DRUGS (3)
  1. ASPIRIN [Concomitant]
  2. MONOPRIL [Concomitant]
  3. VIOXX [Suspect]
     Indication: ARTHRALGIA
     Route: 048
     Dates: start: 20030101, end: 20031001

REACTIONS (5)
  - EMBOLIC STROKE [None]
  - FALL [None]
  - FLUID RETENTION [None]
  - HEAD INJURY [None]
  - WEIGHT INCREASED [None]
